FAERS Safety Report 5797221-2 (Version None)
Quarter: 2008Q3

REPORT INFORMATION
  Report Type: 
  Country: None (occurrence: None)
  Receive Date: 20080701
  Receipt Date: 20080620
  Transmission Date: 20090109
  Serious: Yes (Other)
  Sender: FDA-Public Use
  Company Number: BR-PFIZER INC-2008053223

PATIENT
  Sex: Female

DRUGS (5)
  1. LIPITOR [Suspect]
     Indication: LIPID METABOLISM DISORDER
     Route: 048
     Dates: start: 20020620, end: 20030820
  2. LIPITOR [Suspect]
     Indication: BLOOD TRIGLYCERIDES ABNORMAL
  3. LOPID [Suspect]
     Dates: start: 20020601, end: 20050101
  4. METFORMIN HCL [Concomitant]
  5. ATENOL [Concomitant]

REACTIONS (1)
  - HEPATIC STEATOSIS [None]
